FAERS Safety Report 18980156 (Version 1)
Quarter: 2021Q1

REPORT INFORMATION
  Report Type: Spontaneous
  Country: GB (occurrence: GB)
  Receive Date: 20210308
  Receipt Date: 20210308
  Transmission Date: 20210420
  Serious: Yes (Other)
  Sender: FDA-Public Use
  Company Number: GB-TORRENT-00025133

PATIENT
  Age: 61 Year
  Sex: Female
  Weight: 54 kg

DRUGS (8)
  1. LORAZEPAM. [Concomitant]
     Active Substance: LORAZEPAM
     Indication: PRODUCT USED FOR UNKNOWN INDICATION
     Dosage: UNKNOWN
  2. PHENYTOIN SODIUM. [Interacting]
     Active Substance: PHENYTOIN SODIUM
     Indication: EPILEPSY
     Dosage: 300MG ON
     Route: 048
  3. SERTRALINE [Concomitant]
     Active Substance: SERTRALINE HYDROCHLORIDE
     Indication: PRODUCT USED FOR UNKNOWN INDICATION
     Dosage: UNKNOWN
  4. VENLAFAXINE [Suspect]
     Active Substance: VENLAFAXINE HYDROCHLORIDE
     Indication: MAJOR DEPRESSION
     Dosage: 75MG OD
     Route: 048
     Dates: start: 20201204
  5. CLONAZEPAM. [Concomitant]
     Active Substance: CLONAZEPAM
     Indication: PRODUCT USED FOR UNKNOWN INDICATION
     Dosage: UNKNOWN
     Dates: start: 20201007
  6. AMISULPRIDE [Concomitant]
     Active Substance: AMISULPRIDE
     Indication: PRODUCT USED FOR UNKNOWN INDICATION
     Dosage: UNKNOWN
  7. FOLIC ACID. [Concomitant]
     Active Substance: FOLIC ACID
     Indication: PRODUCT USED FOR UNKNOWN INDICATION
     Dosage: UNKNOWN
  8. FROVATRIPTAN. [Concomitant]
     Active Substance: FROVATRIPTAN
     Indication: PRODUCT USED FOR UNKNOWN INDICATION
     Dosage: PRN

REACTIONS (5)
  - Ataxia [Unknown]
  - Incontinence [Unknown]
  - Drug interaction [Recovered/Resolved]
  - Gait disturbance [Unknown]
  - Confusional state [Unknown]

NARRATIVE: CASE EVENT DATE: 20201204
